FAERS Safety Report 7335357-5 (Version None)
Quarter: 2011Q1

REPORT INFORMATION
  Report Type: 
  Country: None (occurrence: None)
  Receive Date: 20110307
  Receipt Date: 20110208
  Transmission Date: 20110831
  Serious: No
  Sender: FDA-Public Use
  Company Number: US-B.I. PHARMACEUTICALS,INC./RIDGEFIELD-2011-BP-04779BP

PATIENT
  Sex: Male

DRUGS (4)
  1. PRADAXA [Suspect]
     Indication: ANTICOAGULANT THERAPY
     Dosage: 300 MG
     Route: 048
     Dates: start: 20110206
  2. LISINOPRIL [Concomitant]
     Indication: HYPERTENSION
     Route: 048
     Dates: start: 20050101
  3. CLONAZEPAM [Concomitant]
     Indication: INSOMNIA
     Dosage: 1 MG
     Route: 048
     Dates: start: 20100401
  4. SOTALOL HYDROCHLORIDE [Concomitant]
     Indication: EXTRASYSTOLES
     Dosage: 160 MG
     Route: 048
     Dates: start: 20060101

REACTIONS (6)
  - SKIN DISCOLOURATION [None]
  - NAUSEA [None]
  - PRURITUS [None]
  - SKIN DISORDER [None]
  - SLUGGISHNESS [None]
  - RASH [None]
